FAERS Safety Report 4624445-X (Version None)
Quarter: 2005Q1

REPORT INFORMATION
  Report Type: 
  Country: None (occurrence: None)
  Receive Date: 20050331
  Receipt Date: 20030908
  Transmission Date: 20050727
  Serious: Yes (Hospitalization, Disabling, Other)
  Sender: FDA-Public Use
  Company Number: US-MERCK-0309USA00841

PATIENT
  Age: 50 Year
  Sex: Male
  Weight: 90 kg

DRUGS (23)
  1. VIOXX [Suspect]
     Indication: PAIN IN EXTREMITY
     Route: 048
     Dates: start: 20000801, end: 20000829
  2. VIOXX [Suspect]
     Route: 048
     Dates: start: 20000830, end: 20000903
  3. VIOXX [Suspect]
     Route: 048
     Dates: start: 20010101, end: 20010902
  4. VIOXX [Suspect]
     Route: 048
     Dates: start: 20000904, end: 20001001
  5. VIOXX [Suspect]
     Route: 048
     Dates: start: 20001002, end: 20001116
  6. VIOXX [Suspect]
     Indication: OSTEOARTHRITIS
     Route: 048
     Dates: start: 20000801, end: 20000829
  7. VIOXX [Suspect]
     Route: 048
     Dates: start: 20000830, end: 20000903
  8. VIOXX [Suspect]
     Route: 048
     Dates: start: 20010101, end: 20010902
  9. VIOXX [Suspect]
     Route: 048
     Dates: start: 20000904, end: 20001001
  10. VIOXX [Suspect]
     Route: 048
     Dates: start: 20001002, end: 20001116
  11. MONOPRIL [Concomitant]
     Indication: HYPERTENSION
     Route: 065
     Dates: start: 19970612, end: 20000801
  12. MONOPRIL [Concomitant]
     Route: 065
     Dates: start: 20000901, end: 20001006
  13. EFFEXOR [Concomitant]
     Route: 065
     Dates: end: 20000101
  14. EFFEXOR [Concomitant]
     Route: 065
     Dates: start: 20001101
  15. ZANTAC [Concomitant]
     Route: 065
  16. NAPROSYN [Concomitant]
     Indication: PAIN IN EXTREMITY
     Route: 065
     Dates: start: 19881220, end: 20000826
  17. NAPROSYN [Concomitant]
     Indication: OSTEOARTHRITIS
     Route: 065
     Dates: start: 19881220, end: 20000826
  18. LEVAQUIN [Concomitant]
     Indication: SKIN LESION
     Route: 065
     Dates: start: 20000901
  19. LEVAQUIN [Concomitant]
     Indication: FOLLICULITIS
     Route: 065
     Dates: start: 20000901
  20. AMBIEN [Concomitant]
     Indication: INSOMNIA
     Route: 065
  21. PREVACID [Suspect]
     Route: 065
     Dates: end: 20000101
  22. PREVACID [Suspect]
     Route: 065
     Dates: start: 20000101, end: 20001116
  23. ZOCOR [Suspect]
     Route: 048
     Dates: start: 19980101, end: 20030930

REACTIONS (21)
  - ACCIDENT [None]
  - AGEUSIA [None]
  - CARPAL TUNNEL SYNDROME [None]
  - CEREBROVASCULAR ACCIDENT [None]
  - CHOLECYSTITIS CHRONIC [None]
  - CHOLELITHIASIS [None]
  - COLON ADENOMA [None]
  - CONSTIPATION [None]
  - DIZZINESS [None]
  - DRY MOUTH [None]
  - DYSPLASIA [None]
  - FATIGUE [None]
  - HEADACHE [None]
  - HYPERTENSION [None]
  - INSOMNIA [None]
  - JOINT INJURY [None]
  - LACERATION [None]
  - PROSTATE CANCER [None]
  - PSORIASIS [None]
  - RASH ERYTHEMATOUS [None]
  - URGE INCONTINENCE [None]
